FAERS Safety Report 5624242-2 (Version None)
Quarter: 2008Q1

REPORT INFORMATION
  Report Type: 
  Country: None (occurrence: None)
  Receive Date: 20080213
  Receipt Date: 20080204
  Transmission Date: 20080703
  Serious: Yes (Other)
  Sender: FDA-Public Use
  Company Number: PHBS2008FR01794

PATIENT
  Age: 23 Year
  Sex: Male

DRUGS (4)
  1. CARBAMAZEPINE [Suspect]
     Indication: EPILEPSY
     Dosage: 600 MG, BID
     Route: 065
  2. VALPROIC ACID [Concomitant]
     Dosage: 1000 MG, BID
     Route: 065
  3. CLARITHROMYCIN [Suspect]
     Indication: BRONCHITIS
     Dosage: 500 MG, BID
     Route: 065
  4. CLOBAZAM [Concomitant]
     Dosage: 10 MG, BID
     Route: 065

REACTIONS (4)
  - COORDINATION ABNORMAL [None]
  - DIPLOPIA [None]
  - DRUG INTERACTION [None]
  - GAIT DISTURBANCE [None]
